FAERS Safety Report 5728425-2 (Version None)
Quarter: 2008Q2

REPORT INFORMATION
  Report Type: 
  Country: None (occurrence: None)
  Receive Date: 20080430
  Receipt Date: 20080424
  Transmission Date: 20081010
  Serious: Yes (Death)
  Sender: FDA-Public Use
  Company Number: TCI2008A00114

PATIENT
  Age: 76 Year
  Sex: Female

DRUGS (4)
  1. TAKEPRON OD TABLETS 30 (LANSOPRAIOLE)(TABLETS) [Suspect]
     Indication: GASTRIC ULCER
     Dosage: 30 MG (30 MG, 1 IN 1 D)  PER ORAL
     Route: 048
     Dates: start: 20071122, end: 20071225
  2. FOSAMAC (ALENDRONATE SODIUM)(TABLETS) [Suspect]
     Indication: OSTEOPOROSIS
     Dosage: 35 MG (35 MG, 1 IN 1 WK), PER ORAL
     Route: 048
     Dates: start: 20071210, end: 20071225
  3. PREDNISOLONE [Concomitant]
  4. MAGNESIUM OXIDE (PREPARATION FOR ORAL USE (NOS)) [Concomitant]

REACTIONS (9)
  - AGRANULOCYTOSIS [None]
  - DISSEMINATED INTRAVASCULAR COAGULATION [None]
  - HEPATIC NECROSIS [None]
  - HEPATITIS ACUTE [None]
  - MALAISE [None]
  - NEUTROPHIL COUNT DECREASED [None]
  - SEPTIC SHOCK [None]
  - STAPHYLOCOCCAL INFECTION [None]
  - WHITE BLOOD CELL COUNT DECREASED [None]
